FAERS Safety Report 12199303 (Version 1)
Quarter: 2016Q1

REPORT INFORMATION
  Report Type: Spontaneous
  Country: US (occurrence: None)
  Receive Date: 20160321
  Receipt Date: 20160321
  Transmission Date: 20160526
  Serious: Yes (Life-Threatening, Hospitalization)
  Sender: FDA-Public Use
  Company Number: None

PATIENT
  Age: 91 Year
  Sex: Female
  Weight: 56 kg

DRUGS (6)
  1. LIPITOR [Concomitant]
     Active Substance: ATORVASTATIN CALCIUM
  2. ISOSORBIDE MONONITRATE (IMDUR) [Concomitant]
  3. COUMADIN [Concomitant]
     Active Substance: WARFARIN SODIUM
  4. METOPROLOL (TOPROL-XL) [Concomitant]
  5. METFORMIN (GLUCOPHAGE) [Concomitant]
  6. WARFARIN [Suspect]
     Active Substance: WARFARIN
     Indication: ATRIAL FIBRILLATION
     Route: 048

REACTIONS (4)
  - Fall [None]
  - Treatment noncompliance [None]
  - International normalised ratio increased [None]
  - Subdural haematoma [None]

NARRATIVE: CASE EVENT DATE: 20160107
